FAERS Safety Report 20755268 (Version 1)
Quarter: 2022Q2

REPORT INFORMATION
  Report Type: Spontaneous
  Country: US (occurrence: US)
  Receive Date: 20220427
  Receipt Date: 20220427
  Transmission Date: 20220721
  Serious: No
  Sender: FDA-Public Use
  Company Number: US-Calliditas-2022CAL00050

PATIENT
  Age: 51 Year
  Sex: Male
  Weight: 129.72 kg

DRUGS (1)
  1. TARPEYO [Suspect]
     Active Substance: BUDESONIDE
     Indication: IgA nephropathy
     Dosage: 16MG ONCE DAILY
     Route: 050
     Dates: start: 20220401

REACTIONS (7)
  - Blood pressure increased [Unknown]
  - Fatigue [Unknown]
  - Oedema [Unknown]
  - Fluid retention [Unknown]
  - Dyspepsia [Unknown]
  - Dysgeusia [Unknown]
  - Nocturia [Unknown]
